FAERS Safety Report 9382362 (Version 2)
Quarter: 2013Q3

REPORT INFORMATION
  Report Type: Report from Study
  Country: BR (occurrence: BR)
  Receive Date: 20130703
  Receipt Date: 20130925
  Transmission Date: 20140515
  Serious: Yes (Other)
  Sender: FDA-Public Use
  Company Number: PHHY2013BR069754

PATIENT
  Age: 14 Year
  Sex: Male

DRUGS (3)
  1. RITALINA [Suspect]
     Indication: ATTENTION DEFICIT/HYPERACTIVITY DISORDER
     Dosage: 1 DF, DAILY
     Route: 048
     Dates: start: 2009, end: 201212
  2. TEGRETOL CR [Concomitant]
     Indication: BIPOLAR DISORDER
     Dosage: 1 DF, DAILY
     Route: 048
  3. RITALINA LA [Concomitant]
     Indication: ATTENTION DEFICIT/HYPERACTIVITY DISORDER
     Dosage: 1 DF, DAILY
     Route: 048
     Dates: start: 201301

REACTIONS (1)
  - Bipolar disorder [Unknown]
